FAERS Safety Report 12697446 (Version 1)
Quarter: 2016Q3

REPORT INFORMATION
  Report Type: Spontaneous
  Country: US (occurrence: None)
  Receive Date: 20160829
  Receipt Date: 20160829
  Transmission Date: 20161109
  Serious: Yes (Other)
  Sender: FDA-Public Use
  Company Number: None

PATIENT
  Age: 58 Year
  Sex: Female
  Weight: 60.1 kg

DRUGS (23)
  1. C PAP W/ OXYGEN [Concomitant]
  2. NUVIGIL [Concomitant]
     Active Substance: ARMODAFINIL
  3. VITAMIN D [Concomitant]
     Active Substance: CHOLECALCIFEROL
  4. BARIATRIC VITAMINS [Concomitant]
  5. NASONES [Concomitant]
  6. SINGULAIR [Concomitant]
     Active Substance: MONTELUKAST SODIUM
  7. XOPENOX [Concomitant]
  8. VIT B [Concomitant]
     Active Substance: VITAMIN B
  9. XANAX [Concomitant]
     Active Substance: ALPRAZOLAM
  10. LEVOTHYROXINE. [Concomitant]
     Active Substance: LEVOTHYROXINE
  11. AMBIEN [Concomitant]
     Active Substance: ZOLPIDEM TARTRATE
  12. DETROL [Concomitant]
     Active Substance: TOLTERODINE TARTRATE
  13. PROZAC [Concomitant]
     Active Substance: FLUOXETINE HYDROCHLORIDE
  14. BISOPROLOL [Concomitant]
     Active Substance: BISOPROLOL
  15. DULERA [Concomitant]
     Active Substance: FORMOTEROL FUMARATE DIHYDRATE\MOMETASONE FUROATE
  16. BARIATRIC VITAMINS [Concomitant]
  17. PRILOSEC [Concomitant]
     Active Substance: OMEPRAZOLE MAGNESIUM
  18. PROAIR HFA [Concomitant]
     Active Substance: ALBUTEROL SULFATE
  19. B COMPLEX + VIT D [Concomitant]
  20. AUBAGIO [Suspect]
     Active Substance: TERIFLUNOMIDE
     Indication: MULTIPLE SCLEROSIS
     Dosage: 1 TABLET (S)  IN THE MORNING TAKEN BY MOUTH
     Route: 048
     Dates: start: 20160404, end: 20160519
  21. NORVASC [Concomitant]
     Active Substance: AMLODIPINE BESYLATE
  22. DURAGESIC [Concomitant]
     Active Substance: FENTANYL
  23. LASX [Concomitant]

REACTIONS (2)
  - Liver function test increased [None]
  - Abdominal pain upper [None]

NARRATIVE: CASE EVENT DATE: 20160411
